FAERS Safety Report 20845043 (Version 1)
Quarter: 2022Q2

REPORT INFORMATION
  Report Type: Spontaneous
  Country: US (occurrence: None)
  Receive Date: 20220517
  Receipt Date: 20220517
  Transmission Date: 20220720
  Serious: Yes (Life-Threatening, Hospitalization, Other)
  Sender: FDA-Public Use
  Company Number: None

PATIENT
  Age: 23 Year
  Sex: Male
  Weight: 87.75 kg

DRUGS (1)
  1. .DELTA.8-TETRAHYDROCANNABINOL\HERBALS [Suspect]
     Active Substance: .DELTA.8-TETRAHYDROCANNABINOL\HERBALS
     Route: 055
     Dates: start: 20220514, end: 20220516

REACTIONS (3)
  - Psychotic disorder [None]
  - Amnesia [None]
  - Gait inability [None]

NARRATIVE: CASE EVENT DATE: 20220514
